FAERS Safety Report 8224909-6 (Version None)
Quarter: 2012Q1

REPORT INFORMATION
  Report Type: 
  Country: None (occurrence: None)
  Receive Date: 20120321
  Receipt Date: 20120306
  Transmission Date: 20120608
  Serious: Yes (Hospitalization)
  Sender: FDA-Public Use
  Company Number: AT-ROCHE-1046450

PATIENT
  Sex: Female
  Weight: 71 kg

DRUGS (1)
  1. AVASTIN [Suspect]
     Indication: RECTAL CANCER
     Dates: start: 20120101

REACTIONS (1)
  - INTERSTITIAL LUNG DISEASE [None]
